FAERS Safety Report 16481296 (Version 1)
Quarter: 2019Q2

REPORT INFORMATION
  Report Type: Report from Study
  Country: None (occurrence: IE)
  Receive Date: 20190626
  Receipt Date: 20190626
  Transmission Date: 20190711
  Serious: Yes (Other)
  Sender: FDA-Public Use
  Company Number: IE-ABBVIE-19K-229-2833927-00

PATIENT
  Sex: Female

DRUGS (1)
  1. HUMIRA [Suspect]
     Active Substance: ADALIMUMAB
     Indication: CROHN^S DISEASE
     Route: 058
     Dates: start: 20170601, end: 2019

REACTIONS (10)
  - Kidney infection [Unknown]
  - Skin odour abnormal [Unknown]
  - Candida infection [Unknown]
  - Dysgeusia [Unknown]
  - Bladder catheterisation [Unknown]
  - Pharyngitis [Unknown]
  - Infective glossitis [Unknown]
  - Oropharyngeal pain [Unknown]
  - Anosmia [Unknown]
  - Ageusia [Unknown]

NARRATIVE: CASE EVENT DATE: 2017
